FAERS Safety Report 19133018 (Version 1)
Quarter: 2021Q2

REPORT INFORMATION
  Report Type: Spontaneous
  Country: US (occurrence: US)
  Receive Date: 20210414
  Receipt Date: 20210414
  Transmission Date: 20210717
  Serious: Yes (Other)
  Sender: FDA-Public Use
  Company Number: US-HIKMA PHARMACEUTICALS USA INC.-US-H14001-21-01789

PATIENT
  Sex: Female

DRUGS (4)
  1. BUPIVACAINE. [Concomitant]
     Active Substance: BUPIVACAINE
     Indication: EPIDURAL ANAESTHESIA
     Dosage: 0.0625%
     Route: 065
  2. PHENYLEPHRINE [Suspect]
     Active Substance: PHENYLEPHRINE HYDROCHLORIDE
     Indication: PRODUCT USED FOR UNKNOWN INDICATION
     Route: 065
  3. LIDOCAINE. [Suspect]
     Active Substance: LIDOCAINE
     Indication: PRODUCT USED FOR UNKNOWN INDICATION
     Dosage: 5 ML EPIDURAL BOLUS OF LIDOCAINE 2% WITH EPINEPHRINE, FOLLOWED THREE MINUTES LATER BY ANOTHER 5 ML
     Route: 065
  4. FENTANYL. [Suspect]
     Active Substance: FENTANYL
     Indication: PRODUCT USED FOR UNKNOWN INDICATION
     Dosage: 12 ML/H
     Route: 065

REACTIONS (7)
  - Dyspnoea [Unknown]
  - Loss of consciousness [Unknown]
  - Nausea [Unknown]
  - Grip strength decreased [Unknown]
  - Muscular weakness [Unknown]
  - Mental status changes [Unknown]
  - Maternal exposure during delivery [Unknown]
